FAERS Safety Report 16551657 (Version 1)
Quarter: 2019Q3

REPORT INFORMATION
  Report Type: Spontaneous
  Country: JP (occurrence: JP)
  Receive Date: 20190710
  Receipt Date: 20190710
  Transmission Date: 20191004
  Serious: Yes (Other)
  Sender: FDA-Public Use
  Company Number: JP-PFIZER INC-2018340465

PATIENT
  Age: 64 Year
  Sex: Female

DRUGS (7)
  1. RANMARK [Concomitant]
     Active Substance: DENOSUMAB
     Indication: METASTASES TO BONE
     Dosage: UNK, EVERY 4 WEEKS
     Route: 058
     Dates: start: 20180908
  2. IBRANCE [Suspect]
     Active Substance: PALBOCICLIB
     Indication: METASTASES TO BONE
     Dosage: 125 MG, 1X/DAY
     Route: 048
     Dates: start: 20180724, end: 20180807
  3. FEMARA [Concomitant]
     Active Substance: LETROZOLE
     Indication: METASTASES TO BONE
     Dosage: 1 DF, 1X/DAY
     Route: 048
     Dates: start: 20180724
  4. FEMARA [Concomitant]
     Active Substance: LETROZOLE
     Indication: METASTASES TO LYMPH NODES
  5. DENOTAS [Concomitant]
     Active Substance: CALCIUM CARBONATE\CHOLECALCIFEROL\MAGNESIUM CARBONATE
     Indication: METASTASES TO BONE
     Dosage: 2 DF, DAILY  (2 TABLETS)
     Route: 048
     Dates: start: 20180908
  6. IBRANCE [Suspect]
     Active Substance: PALBOCICLIB
     Dosage: 75 MG, 1X/DAY
     Dates: start: 20180925, end: 20181016
  7. IBRANCE [Suspect]
     Active Substance: PALBOCICLIB
     Indication: METASTASES TO LYMPH NODES
     Dosage: 100 MG, 1X/DAY
     Route: 048
     Dates: start: 20180821, end: 20180911

REACTIONS (5)
  - Blood potassium decreased [Unknown]
  - Hepatic function abnormal [Unknown]
  - Neutrophil count decreased [Recovered/Resolved]
  - Cardiac failure [Unknown]
  - Liver disorder [Unknown]

NARRATIVE: CASE EVENT DATE: 20180807
